FAERS Safety Report 8186448-0 (Version None)
Quarter: 2012Q1

REPORT INFORMATION
  Report Type: 
  Country: None (occurrence: None)
  Receive Date: 20120306
  Receipt Date: 20120227
  Transmission Date: 20120608
  Serious: Yes (Other)
  Sender: FDA-Public Use
  Company Number: US-US-EMD SERONO, INC.-239187J08USA

PATIENT
  Sex: Female

DRUGS (4)
  1. NAPROXEN (ALEVE) [Concomitant]
     Indication: PREMEDICATION
  2. REBIF [Suspect]
     Indication: MULTIPLE SCLEROSIS
     Route: 058
     Dates: start: 20040301
  3. PROVIGIL [Concomitant]
     Indication: FATIGUE
  4. UNSPECIFIED IRON PIL [Concomitant]
     Indication: ANAEMIA
     Dosage: SOMETIMES

REACTIONS (1)
  - UTERINE LEIOMYOMA [None]
